FAERS Safety Report 16836737 (Version 1)
Quarter: 2019Q3

REPORT INFORMATION
  Report Type: Spontaneous
  Country: US (occurrence: US)
  Receive Date: 20190922
  Receipt Date: 20190922
  Transmission Date: 20191005
  Serious: No
  Sender: FDA-Public Use
  Company Number: US-ELI_LILLY_AND_COMPANY-US201909001832

PATIENT
  Sex: Male

DRUGS (2)
  1. OTEZLA [Concomitant]
     Active Substance: APREMILAST
     Indication: PRODUCT USED FOR UNKNOWN INDICATION
  2. TALTZ [Suspect]
     Active Substance: IXEKIZUMAB
     Indication: PSORIASIS
     Dosage: 80 MG, UNKNOWN
     Route: 065
     Dates: start: 201803

REACTIONS (1)
  - Accidental underdose [Unknown]
